FAERS Safety Report 8003287-1 (Version None)
Quarter: 2011Q4

REPORT INFORMATION
  Report Type: 
  Country: None (occurrence: None)
  Receive Date: 20111222
  Receipt Date: 20111220
  Transmission Date: 20120403
  Serious: Yes (Death, Hospitalization, Other)
  Sender: FDA-Public Use
  Company Number: PHHY2011JP89022

PATIENT
  Sex: Female

DRUGS (15)
  1. LOXONIN [Concomitant]
     Indication: METASTATIC RENAL CELL CARCINOMA
     Dosage: 180 MG, UNK
     Route: 048
     Dates: start: 20100806
  2. FUROSEMIDE [Concomitant]
     Indication: METASTATIC RENAL CELL CARCINOMA
     Dosage: 20 MEQ/KG, UNK
     Route: 048
     Dates: start: 20101006
  3. MS REISHIPPU [Concomitant]
     Indication: METASTATIC RENAL CELL CARCINOMA
     Dosage: UNK UKN, UNK
     Dates: start: 20101009
  4. SUNITINIB MALATE [Concomitant]
     Indication: METASTATIC RENAL CELL CARCINOMA
     Dosage: UNK UKN, UNK
     Dates: start: 20100107, end: 20100721
  5. HUMALOG [Concomitant]
     Dosage: 10 IU, UNK
     Route: 058
     Dates: start: 20100806
  6. TRANEXAMIC ACID [Concomitant]
     Indication: METASTATIC RENAL CELL CARCINOMA
     Dosage: 750 MG, UNK
     Route: 048
     Dates: start: 20100902, end: 20100908
  7. AFINITOR [Suspect]
     Dosage: 5 MG, DAILY
     Route: 048
     Dates: start: 20101006, end: 20101030
  8. AFINITOR [Suspect]
     Indication: METASTATIC RENAL CELL CARCINOMA
     Dosage: 5 MG, DAILY
     Route: 048
     Dates: start: 20100806, end: 20100811
  9. AFINITOR [Suspect]
     Dosage: 5 MG, DAILY
     Route: 048
     Dates: start: 20101111, end: 20101208
  10. DIOVAN [Concomitant]
     Indication: METASTATIC RENAL CELL CARCINOMA
     Dosage: 80 MG, UNK
     Route: 048
     Dates: start: 20101016
  11. ADALAT [Concomitant]
     Indication: METASTATIC RENAL CELL CARCINOMA
     Dosage: 20 MG, UNK
     Route: 048
     Dates: start: 20101019
  12. TORISEL [Concomitant]
     Indication: METASTATIC RENAL CELL CARCINOMA
     Dosage: UNK UKN, UNK
     Dates: start: 20110119, end: 20110203
  13. AFINITOR [Suspect]
     Dosage: 5 MG, DAILY
     Route: 048
     Dates: start: 20100827, end: 20100929
  14. KETOPROFEN [Concomitant]
     Indication: METASTATIC RENAL CELL CARCINOMA
     Dosage: 3 DF, UNK
     Dates: start: 20100806, end: 20101008
  15. ADONA [Concomitant]
     Indication: METASTATIC RENAL CELL CARCINOMA
     Dosage: 90 MG, UNK
     Route: 048
     Dates: start: 20100902, end: 20100908

REACTIONS (5)
  - NEOPLASM MALIGNANT [None]
  - RENAL HAEMORRHAGE [None]
  - GAMMA-GLUTAMYLTRANSFERASE INCREASED [None]
  - METASTASES TO LUNG [None]
  - NEOPLASM PROGRESSION [None]
